FAERS Safety Report 7325777-7 (Version None)
Quarter: 2011Q1

REPORT INFORMATION
  Report Type: 
  Country: None (occurrence: None)
  Receive Date: 20110301
  Receipt Date: 20110301
  Transmission Date: 20110831
  Serious: No
  Sender: FDA-Public Use
  Company Number: None

PATIENT
  Age: 12 Year
  Sex: Female
  Weight: 33.5662 kg

DRUGS (1)
  1. ALCOHOL PREP PAD LG 200'S STER (KENDALL) KENDALL [Suspect]
     Indication: IMMUNODEFICIENCY COMMON VARIABLE
     Dosage: PATIENT APPLIED TOPICALLY TO INJECTION PRIOR TO VIVAGLOBIN INFUSION
     Route: 061
     Dates: start: 20110115

REACTIONS (7)
  - APPLICATION SITE ERYTHEMA [None]
  - PYREXIA [None]
  - PRODUCT CONTAMINATION [None]
  - APPLICATION SITE SWELLING [None]
  - INFECTION [None]
  - MALAISE [None]
  - PRODUCT QUALITY ISSUE [None]
